FAERS Safety Report 9129210 (Version 1)
Quarter: 2013Q1

REPORT INFORMATION
  Report Type: Spontaneous
  Country: CN (occurrence: CN)
  Receive Date: 20130125
  Receipt Date: 20130125
  Transmission Date: 20140127
  Serious: Yes (Other)
  Sender: FDA-Public Use
  Company Number: PHHY2012CN125348

PATIENT
  Age: 35 Year
  Sex: Male
  Weight: 74 kg

DRUGS (1)
  1. VOTALIN [Suspect]
     Indication: OSTEOARTHRITIS
     Dosage: 1 G, QD
     Route: 061
     Dates: start: 20110420, end: 20110420

REACTIONS (2)
  - Hypersensitivity [Recovered/Resolved]
  - Anaphylactoid reaction [Recovered/Resolved]
